FAERS Safety Report 8304037-1 (Version None)
Quarter: 2012Q2

REPORT INFORMATION
  Report Type: 
  Country: None (occurrence: None)
  Receive Date: 20120418
  Receipt Date: 20120411
  Transmission Date: 20120825
  Serious: Yes (Other)
  Sender: FDA-Public Use
  Company Number: 2012-001456

PATIENT
  Age: 63 Year
  Sex: Male

DRUGS (7)
  1. VITAMIN D	/00318501/ (COLECALCIFEROL) [Concomitant]
  2. ACTONEL [Suspect]
     Indication: OSTEOPOROSIS
     Dosage: 35 MG ONCE WEEKLY, ORAL
     Route: 048
     Dates: start: 20040101, end: 20060101
  3. LIPITOR [Concomitant]
  4. ASPIRIN [Concomitant]
  5. CALCIUM CARBONATE [Concomitant]
  6. ANTACIDS [Concomitant]
  7. POLYETHYLENE GLYCOL [Concomitant]

REACTIONS (7)
  - MYOCARDIAL INFARCTION [None]
  - DYSPHAGIA [None]
  - DRUG ADMINISTRATION ERROR [None]
  - DRUG INEFFECTIVE [None]
  - BONE DENSITY DECREASED [None]
  - BARRETT'S OESOPHAGUS [None]
  - THROAT CANCER [None]
